FAERS Safety Report 8433095-9 (Version None)
Quarter: 2012Q2

REPORT INFORMATION
  Report Type: 
  Country: None (occurrence: None)
  Receive Date: 20120613
  Receipt Date: 20120604
  Transmission Date: 20120825
  Serious: Yes (Hospitalization)
  Sender: FDA-Public Use
  Company Number: US-ASTRAZENECA-2012SE37209

PATIENT
  Age: 60 Year
  Sex: Female
  Weight: 56.2 kg

DRUGS (10)
  1. ENTOCORT EC [Suspect]
     Dosage: TWO PER DAY
     Route: 048
  2. GENERIC FOSOMAX [Concomitant]
     Dosage: ONE A WEEK
  3. ZETIA [Concomitant]
  4. LEVOTHYROXINE SODIUM [Concomitant]
  5. ENTOCORT EC [Suspect]
     Indication: CROHN'S DISEASE
     Route: 048
     Dates: start: 20000101
  6. ASPIRIN [Concomitant]
  7. ENTOCORT EC [Suspect]
     Route: 048
     Dates: start: 20110101
  8. CALCIUM [Concomitant]
  9. FISH OIL [Concomitant]
  10. BYSTOLIC [Concomitant]
     Indication: HYPERTENSION

REACTIONS (5)
  - ILEUS [None]
  - WEIGHT GAIN POOR [None]
  - MALAISE [None]
  - INTENTIONAL DRUG MISUSE [None]
  - CROHN'S DISEASE [None]
